FAERS Safety Report 12966839 (Version 1)
Quarter: 2016Q4

REPORT INFORMATION
  Report Type: Spontaneous
  Country: US (occurrence: US)
  Receive Date: 20161121
  Receipt Date: 20161121
  Transmission Date: 20170207
  Serious: Yes (Other)
  Sender: FDA-Public Use
  Company Number: None

PATIENT
  Age: 46 Year
  Sex: Female
  Weight: 54 kg

DRUGS (1)
  1. REMICADE [Suspect]
     Active Substance: INFLIXIMAB
     Indication: COLITIS ULCERATIVE
     Dosage: 270 MG/KG INTRAVENOUS DRIP Q 6 WEEKS
     Route: 041
     Dates: start: 20161020, end: 20161115

REACTIONS (1)
  - Flank pain [None]

NARRATIVE: CASE EVENT DATE: 20161115
